FAERS Safety Report 4645585-5 (Version None)
Quarter: 2005Q2

REPORT INFORMATION
  Report Type: 
  Country: None (occurrence: None)
  Receive Date: 20050331
  Receipt Date: 20050117
  Transmission Date: 20051028
  Serious: Yes (Hospitalization)
  Sender: FDA-Public Use
  Company Number: 05P-163-0287459

PATIENT
  Age: 63 Year
  Sex: Female

DRUGS (6)
  1. HUMIRA [Suspect]
     Indication: RHEUMATOID ARTHRITIS
     Dosage: 40 MG, 1 IN 2 WK, SUBCUTANEOUS
     Route: 058
     Dates: start: 20030101, end: 20050112
  2. LEFLUNOMIDE [Suspect]
     Indication: RHEUMATOID ARTHRITIS
     Dosage: 20 MG, 3 IN 1 WK, PER ORAL
     Route: 048
     Dates: start: 20010101, end: 20050112
  3. CELECOXIB [Concomitant]
  4. TRAMINOL [Concomitant]
  5. BENAZEPRIL HYDROCHLORIDE [Concomitant]
  6. DIAZIDE [Concomitant]

REACTIONS (2)
  - LEUKOPENIA [None]
  - SINUSITIS [None]
